FAERS Safety Report 5555759-7 (Version None)
Quarter: 2007Q4

REPORT INFORMATION
  Report Type: 
  Country: None (occurrence: None)
  Receive Date: 20071213
  Receipt Date: 20071206
  Transmission Date: 20080405
  Serious: Yes (Hospitalization)
  Sender: FDA-Public Use
  Company Number: US-BAXTER-2007BH008837

PATIENT
  Age: 64 Year

DRUGS (5)
  1. TRAVASOL 10% [Suspect]
     Indication: NUTRITIONAL SUPPORT
     Dosage: DOSE UNIT:UNKNOWN
     Route: 065
     Dates: end: 20070101
  2. PROSOL 20% SULFITE FREE [Suspect]
     Indication: NUTRITIONAL SUPPORT
     Dosage: DOSE UNIT:UNKNOWN
     Route: 065
     Dates: end: 20070101
  3. STERILE WATER FOR INJECTION IN PLASTIC CONTAINER [Suspect]
     Indication: NUTRITIONAL SUPPORT
     Dosage: DOSE UNIT:UNKNOWN
     Route: 065
     Dates: end: 20070101
  4. DIANEAL [Suspect]
     Indication: PERITONEAL DIALYSIS
     Dosage: DOSE UNIT:UNKNOWN
     Route: 033
     Dates: end: 20070101
  5. DIANEAL [Suspect]
     Indication: PERITONEAL DIALYSIS
     Dosage: DOSE UNIT:UNKNOWN
     Route: 033

REACTIONS (1)
  - FUNGAL PERITONITIS [None]
